FAERS Safety Report 8389432-7 (Version None)
Quarter: 2012Q2

REPORT INFORMATION
  Report Type: 
  Country: None (occurrence: None)
  Receive Date: 20120528
  Receipt Date: 20120515
  Transmission Date: 20120825
  Serious: No
  Sender: FDA-Public Use
  Company Number: US-BAYER-2012-049468

PATIENT
  Sex: Female
  Weight: 60 kg

DRUGS (3)
  1. LISINOPRIL [Concomitant]
  2. NAPROXEN SODIUM [Suspect]
     Indication: ARTHRALGIA
     Dosage: 1 U, PRN
     Route: 048
     Dates: start: 20120401
  3. LOVASTATIN [Concomitant]

REACTIONS (1)
  - ARTHRALGIA [None]
